FAERS Safety Report 24898935 (Version 3)
Quarter: 2025Q1

REPORT INFORMATION
  Report Type: Report from Study
  Country: US (occurrence: US)
  Receive Date: 20250129
  Receipt Date: 20250326
  Transmission Date: 20250409
  Serious: No
  Sender: SUNOVION
  Company Number: US-SUMITOMO PHARMA SWITZERLAND GMBH-2024SPA005549

PATIENT

DRUGS (4)
  1. ORGOVYX [Suspect]
     Active Substance: RELUGOLIX
     Indication: Prostate cancer
     Dosage: 360 MG, SINGLE
     Route: 048
  2. ORGOVYX [Suspect]
     Active Substance: RELUGOLIX
     Dosage: 120 MG, QD
     Route: 048
  3. ASPIRIN [Concomitant]
     Active Substance: ASPIRIN
     Route: 065
  4. VALSARTAN [Concomitant]
     Active Substance: VALSARTAN
     Route: 065

REACTIONS (10)
  - Cardiac disorder [Unknown]
  - Pain [Unknown]
  - Pharyngeal swelling [Unknown]
  - Rash erythematous [Unknown]
  - Rash macular [Unknown]
  - Dizziness [Unknown]
  - Rash [Unknown]
  - Arthralgia [Unknown]
  - Fatigue [Unknown]
  - Product dose omission issue [Unknown]

NARRATIVE: CASE EVENT DATE: 20241120
